FAERS Safety Report 7620225-1 (Version None)
Quarter: 2011Q3

REPORT INFORMATION
  Report Type: 
  Country: None (occurrence: None)
  Receive Date: 20110719
  Receipt Date: 20110707
  Transmission Date: 20111222
  Serious: Yes (Hospitalization)
  Sender: FDA-Public Use
  Company Number: PHFR2011GB04078

PATIENT
  Age: 66 Year
  Sex: Male

DRUGS (1)
  1. DICLOFENAC [Suspect]
     Indication: BACK PAIN
     Dosage: UNK UKN, UNK
     Route: 065

REACTIONS (5)
  - WHITE BLOOD CELL COUNT DECREASED [None]
  - ESCHAR [None]
  - NEUTROPHIL COUNT DECREASED [None]
  - ERYTHEMA [None]
  - ECTHYMA [None]
